FAERS Safety Report 10255980 (Version 1)
Quarter: 2014Q2

REPORT INFORMATION
  Report Type: Spontaneous
  Country: ES (occurrence: ES)
  Receive Date: 20140624
  Receipt Date: 20140624
  Transmission Date: 20141212
  Serious: Yes (Hospitalization)
  Sender: FDA-Public Use
  Company Number: ES-GLAXOSMITHKLINE-B1005821A

PATIENT
  Age: 18 Year
  Sex: Female

DRUGS (2)
  1. DUAC [Suspect]
     Indication: ACNE
     Route: 061
     Dates: start: 20120625, end: 20120717
  2. MINOCIN [Suspect]
     Indication: ACNE
     Route: 048
     Dates: start: 20120625, end: 20120717

REACTIONS (4)
  - Rash [Recovering/Resolving]
  - Tongue disorder [Recovering/Resolving]
  - Lip swelling [Recovering/Resolving]
  - Blepharitis [Recovering/Resolving]
